FAERS Safety Report 7006203-4 (Version None)
Quarter: 2010Q3

REPORT INFORMATION
  Report Type: 
  Country: None (occurrence: None)
  Receive Date: 20100921
  Receipt Date: 20100912
  Transmission Date: 20110219
  Serious: Yes (Other)
  Sender: FDA-Public Use
  Company Number: US-PFIZER INC-2010115628

PATIENT
  Sex: Female

DRUGS (1)
  1. CHANTIX [Suspect]
     Dosage: UNK

REACTIONS (5)
  - ABNORMAL DREAMS [None]
  - DEPRESSION [None]
  - DRUG INTOLERANCE [None]
  - INSOMNIA [None]
  - IRRITABILITY [None]
